FAERS Safety Report 23977350 (Version 1)
Quarter: 2024Q2

REPORT INFORMATION
  Report Type: Spontaneous
  Country: US (occurrence: US)
  Receive Date: 20240614
  Receipt Date: 20240614
  Transmission Date: 20240715
  Serious: No
  Sender: FDA-Public Use
  Company Number: US-BRISTOL-MYERS SQUIBB COMPANY-2024-093748

PATIENT
  Age: 72 Year
  Sex: Female

DRUGS (11)
  1. REVLIMID [Suspect]
     Active Substance: LENALIDOMIDE
     Indication: Plasma cell myeloma
     Route: 048
     Dates: start: 20240514
  2. ACYCLOVIR [Concomitant]
     Active Substance: ACYCLOVIR
  3. CALCIUM [Concomitant]
     Active Substance: CALCIUM
     Dosage: W/D TABLETS G/S
  4. DARZALEX [Concomitant]
     Active Substance: DARATUMUMAB
     Dosage: 100MG/5ML ^NJ. 1 VIAL
  5. DEXAMETHASONE [Concomitant]
     Active Substance: DEXAMETHASONE
  6. ELIQUIS [Concomitant]
     Active Substance: APIXABAN
  7. OXYCODONE [Concomitant]
     Active Substance: OXYCODONE\OXYCODONE HYDROCHLORIDE
     Dosage: IMMEDIATE RELEASE
  8. PROBIOTIC ACIDOPHILUS [LACTOBACILLUS ACIDOPHILUS] [Concomitant]
  9. OMEPRAZOLE [Concomitant]
     Active Substance: DONEPEZIL HYDROCHLORIDE\OMEPRAZOLE\OMEPRAZOLE MAGNESIUM
  10. TYLENOL [Concomitant]
     Active Substance: ACETAMINOPHEN
  11. VITAMIN D3 [Concomitant]
     Active Substance: CHOLECALCIFEROL

REACTIONS (1)
  - Feeling abnormal [Unknown]

NARRATIVE: CASE EVENT DATE: 20240601
